FAERS Safety Report 21101533 (Version 1)
Quarter: 2022Q3

REPORT INFORMATION
  Report Type: Spontaneous
  Country: US (occurrence: US)
  Receive Date: 20220719
  Receipt Date: 20220719
  Transmission Date: 20221026
  Serious: Yes (Other)
  Sender: FDA-Public Use
  Company Number: US-SA-SAC20220715001991

PATIENT
  Age: 61 Year

DRUGS (1)
  1. ZANTAC [Suspect]
     Active Substance: RANITIDINE HYDROCHLORIDE
     Dosage: UNK (UNKNOWN AT THIS TIME FREQUENCY :OTHER)
     Dates: start: 200901, end: 201812

REACTIONS (2)
  - Breast cancer [Unknown]
  - Colorectal cancer [Unknown]

NARRATIVE: CASE EVENT DATE: 20130101
